FAERS Safety Report 12285813 (Version 2)
Quarter: 2016Q2

REPORT INFORMATION
  Report Type: Spontaneous
  Country: IE (occurrence: IE)
  Receive Date: 20160420
  Receipt Date: 20160517
  Transmission Date: 20160815
  Serious: Yes (Hospitalization)
  Sender: FDA-Public Use
  Company Number: IE-BAXTER-2016BAX019264

PATIENT
  Age: 77 Year
  Sex: Male

DRUGS (5)
  1. SODIUM CHLORIDE 0.9% W/V INTRAVENOUS INFUSION BP [Suspect]
     Active Substance: SODIUM CHLORIDE
     Route: 042
     Dates: start: 20160404
  2. SODIUM CHLORIDE 0.9% W/V INTRAVENOUS INFUSION BP [Suspect]
     Active Substance: SODIUM CHLORIDE
     Indication: MEDICATION DILUTION
     Route: 042
  3. MEROPENEM. [Suspect]
     Active Substance: MEROPENEM
     Indication: PRODUCT USED FOR UNKNOWN INDICATION
     Route: 065
  4. CUBICIN [Suspect]
     Active Substance: DAPTOMYCIN
     Indication: OSTEOMYELITIS
     Route: 042
  5. TAZOCIN [Suspect]
     Active Substance: PIPERACILLIN SODIUM\TAZOBACTAM SODIUM
     Indication: PRODUCT USED FOR UNKNOWN INDICATION
     Dosage: 4 G/0.5 G
     Route: 042
     Dates: start: 20160404

REACTIONS (2)
  - Respiratory tract infection [Unknown]
  - Extra dose administered [Unknown]

NARRATIVE: CASE EVENT DATE: 20160408
